FAERS Safety Report 6018675-2 (Version None)
Quarter: 2008Q4

REPORT INFORMATION
  Report Type: 
  Country: None (occurrence: None)
  Receive Date: 20081222
  Receipt Date: 20081212
  Transmission Date: 20090506
  Serious: Yes (Other)
  Sender: FDA-Public Use
  Company Number: CIO08020591

PATIENT
  Age: 78 Year
  Sex: Female

DRUGS (1)
  1. NYQUIL COLD/FLU,  ALCOHOL 10% PSEUDOEPHEDRINE FREE, CHERRY FLV (PARACE [Suspect]
     Dosage: 30 ML, 1 ONLY FOR 1 DAY, ORAL
     Route: 048
     Dates: start: 20081210, end: 20081210

REACTIONS (1)
  - HYPERSENSITIVITY [None]
